FAERS Safety Report 9525294 (Version 2)
Quarter: 2013Q4

REPORT INFORMATION
  Report Type: Spontaneous
  Country: US (occurrence: None)
  Receive Date: 20130912
  Receipt Date: 20131023
  Transmission Date: 20140711
  Serious: Yes (Other)
  Sender: FDA-Public Use
  Company Number: 2013-US-000077

PATIENT
  Age: 48 Year
  Sex: Female

DRUGS (1)
  1. XYREM [Suspect]
     Indication: NARCOLEPSY
     Route: 048
     Dates: start: 20070316

REACTIONS (5)
  - Concussion [None]
  - Drug ineffective [None]
  - Drug dose omission [None]
  - Somnambulism [None]
  - Fall [None]
